FAERS Safety Report 9239700 (Version 1)
Quarter: 2013Q2

REPORT INFORMATION
  Report Type: Spontaneous
  Country: KR (occurrence: KR)
  Receive Date: 20130418
  Receipt Date: 20130418
  Transmission Date: 20140414
  Serious: Yes (Other)
  Sender: FDA-Public Use
  Company Number: KR-PFIZER INC-2013118325

PATIENT
  Sex: Male

DRUGS (1)
  1. CARDURA XL [Suspect]
     Indication: BENIGN PROSTATIC HYPERPLASIA
     Dosage: 4 MG, UNK
     Route: 048

REACTIONS (5)
  - Cystitis [Unknown]
  - Bladder discomfort [Unknown]
  - Bladder pain [Unknown]
  - Urinary incontinence [Unknown]
  - Back pain [Unknown]
